FAERS Safety Report 6288160-1 (Version None)
Quarter: 2009Q3

REPORT INFORMATION
  Report Type: 
  Country: None (occurrence: None)
  Receive Date: 20090729
  Receipt Date: 20090626
  Transmission Date: 20100115
  Serious: No
  Sender: FDA-Public Use
  Company Number: US-BAYER-200925095NA

PATIENT
  Age: 44 Year
  Sex: Female
  Weight: 61 kg

DRUGS (9)
  1. ULTRAVIST 300 [Suspect]
     Indication: COMPUTERISED TOMOGRAM THORAX
     Dosage: POWER INJECTOR AND WARMER, 0.8 ML/SEC INTO LEFT ANTECUBITAL
     Route: 042
  2. BENADRYL [Concomitant]
     Dosage: AS USED: 25 MG
  3. CHEMO [Concomitant]
  4. AVASTIN [Concomitant]
  5. OXIPLATIN [Concomitant]
  6. LEXAPRO [Concomitant]
  7. TRAZODONE [Concomitant]
  8. AMBIEN [Concomitant]
  9. BARIUM [Concomitant]
     Route: 048

REACTIONS (1)
  - URTICARIA [None]
